FAERS Safety Report 13672730 (Version 2)
Quarter: 2017Q3

REPORT INFORMATION
  Report Type: Spontaneous
  Country: US (occurrence: US)
  Receive Date: 20170621
  Receipt Date: 20170731
  Transmission Date: 20171127
  Serious: Yes (Hospitalization, Other)
  Sender: FDA-Public Use
  Company Number: US-SEPTODONT-201704056

PATIENT
  Age: 27 Year
  Sex: Female
  Weight: 88.5 kg

DRUGS (3)
  1. LIDOCAINE HYDROCHLORIDE 2% WITH EPINEPHRINE 1:100,000 INJECTION [Suspect]
     Active Substance: EPINEPHRINE\LIDOCAINE HYDROCHLORIDE
     Indication: LOCAL ANAESTHESIA
     Dosage: 3 CARPULES OF EITHER DRUG #1, #2 OR #3 VIA INFILTRATION IN INFECTED TISSUE WITH 30G MONOJECT NEEDLE
     Route: 004
     Dates: start: 20170512, end: 20170512
  2. LIDOCAINE HYDROCHLORIDE 2% WITH EPINEPHRINE 1:100,000 INJECTION [Suspect]
     Active Substance: EPINEPHRINE\LIDOCAINE HYDROCHLORIDE
     Indication: LOCAL ANAESTHESIA
     Dosage: 3 CARPULES OF EITHER DRUG #1, #2 OR #3 VIA INFILTRATION IN INFECTED TISSUE WITH 30G MONOJECT NEEDLE
     Route: 004
     Dates: start: 20170512, end: 20170512
  3. LIDOCAINE HYDROCHLORIDE 2% WITH EPINEPHRINE 1:100,000 INJECTION [Suspect]
     Active Substance: EPINEPHRINE\LIDOCAINE HYDROCHLORIDE
     Indication: DENTAL LOCAL ANAESTHESIA
     Dosage: 3 CARPULES OF EITHER DRUG #1, #2 OR #3 VIA INFILTRATION IN INFECTED TISSUE WITH 30G MONOJECT NEEDLE
     Route: 004
     Dates: start: 20170512, end: 20170512

REACTIONS (4)
  - Cellulitis [Recovered/Resolved]
  - Swelling face [Recovered/Resolved]
  - Eye swelling [Recovered/Resolved]
  - Paraesthesia [Recovered/Resolved]

NARRATIVE: CASE EVENT DATE: 20170512
